FAERS Safety Report 8895900 (Version 1)
Quarter: 2012Q4

REPORT INFORMATION
  Report Type: 
  Country: US (occurrence: US)
  Receive Date: 20121107
  Receipt Date: 20121107
  Transmission Date: 20130627
  Serious: No
  Sender: FDA-Public Use
  Company Number: US-ASTRAZENECA-2012SE25125

PATIENT

DRUGS (5)
  1. ZOMIG [Suspect]
     Route: 048
  2. MELATONIN [Concomitant]
  3. ZOFRAN [Concomitant]
  4. MIGRANAL SPRAY [Concomitant]
  5. SUMATRIPTAN [Concomitant]

REACTIONS (2)
  - Cluster headache [Unknown]
  - Migraine [Unknown]
